FAERS Safety Report 16867491 (Version 1)
Quarter: 2019Q3

REPORT INFORMATION
  Report Type: Spontaneous
  Country: US (occurrence: US)
  Receive Date: 20190806
  Receipt Date: 20190806
  Transmission Date: 20191007
  Serious: No
  Sender: FDA-Public Use
  Company Number: None

PATIENT
  Sex: Female

DRUGS (1)
  1. LUPRON DEPOT [Suspect]
     Active Substance: LEUPROLIDE ACETATE
     Indication: UTERINE LEIOMYOMA
     Dosage: ?          OTHER DOSE:11.25MG;OTHER FREQUENCY:EVERY 3 MONTHS;?
     Route: 041
     Dates: start: 201904

REACTIONS (4)
  - Abdominal distension [None]
  - Abdominal pain upper [None]
  - Headache [None]
  - Abdominal discomfort [None]
